FAERS Safety Report 9146160 (Version 1)
Quarter: 2013Q1

REPORT INFORMATION
  Report Type: Spontaneous
  Country: GB (occurrence: GB)
  Receive Date: 20130307
  Receipt Date: 20130307
  Transmission Date: 20140127
  Serious: Yes (Other)
  Sender: FDA-Public Use
  Company Number: GB-ELI_LILLY_AND_COMPANY-GB201302009577

PATIENT
  Sex: Male

DRUGS (3)
  1. ZYPREXA [Suspect]
     Indication: SCHIZOPHRENIA
     Dosage: 15 MG, QD
     Route: 048
  2. ZYPREXA [Suspect]
     Dosage: 20 MG, QD
  3. ZYPREXA [Suspect]
     Dosage: 15 MG, QD

REACTIONS (1)
  - Atrioventricular block first degree [Not Recovered/Not Resolved]
